FAERS Safety Report 20815764 (Version 2)
Quarter: 2022Q2

REPORT INFORMATION
  Report Type: Report from Study
  Country: CO (occurrence: CO)
  Receive Date: 20220511
  Receipt Date: 20220630
  Transmission Date: 20220720
  Serious: Yes (Hospitalization, Other)
  Sender: FDA-Public Use
  Company Number: CO-009507513-2202COL007384

PATIENT
  Age: 72 Year
  Sex: Female
  Weight: 51 kg

DRUGS (1)
  1. PEMBROLIZUMAB [Suspect]
     Active Substance: PEMBROLIZUMAB
     Indication: Malignant melanoma
     Dosage: 200 MILLIGRAM, Q3W
     Route: 042
     Dates: start: 20211118, end: 20211230

REACTIONS (14)
  - Groin pain [Recovering/Resolving]
  - Inguinal mass [Recovered/Resolved]
  - Inflammation [Recovering/Resolving]
  - Tissue rupture [Recovered/Resolved]
  - Anaemia [Not Recovered/Not Resolved]
  - Chest pain [Recovering/Resolving]
  - Abdominal mass [Not Recovered/Not Resolved]
  - Balance disorder [Recovering/Resolving]
  - General physical health deterioration [Not Recovered/Not Resolved]
  - Bronchitis [Not Recovered/Not Resolved]
  - Pain [Not Recovered/Not Resolved]
  - Abdominal pain lower [Not Recovered/Not Resolved]
  - Decreased appetite [Recovering/Resolving]
  - Asthenia [Recovering/Resolving]

NARRATIVE: CASE EVENT DATE: 20220110
